FAERS Safety Report 10251972 (Version 1)
Quarter: 2014Q2

REPORT INFORMATION
  Report Type: Report from Study
  Country: US (occurrence: US)
  Receive Date: 20140623
  Receipt Date: 20140623
  Transmission Date: 20141212
  Serious: Yes (Other)
  Sender: FDA-Public Use
  Company Number: US-JNJFOC-20140606434

PATIENT
  Age: 76 Year
  Sex: Male

DRUGS (5)
  1. ZYTIGA [Suspect]
     Indication: PROSTATE CANCER
     Dosage: 250 MG FOUR TABLETS AT ONCE
     Route: 048
     Dates: start: 20140515
  2. FLOMAX [Concomitant]
     Indication: PROSTATE CANCER
     Route: 048
     Dates: start: 2013
  3. METHOCARBAMOL [Concomitant]
     Indication: PROCTALGIA
     Route: 048
     Dates: start: 2013
  4. SENEXON (SENNOSIDES) [Concomitant]
     Indication: BOWEL MOVEMENT IRREGULARITY
     Route: 048
     Dates: start: 2013
  5. VICODIN [Concomitant]
     Indication: PAIN
     Dosage: 3-4 TIMES DAILY
     Route: 048
     Dates: start: 2013

REACTIONS (7)
  - Weight decreased [Not Recovered/Not Resolved]
  - Abdominal pain [Not Recovered/Not Resolved]
  - Malaise [Unknown]
  - Malaise [Not Recovered/Not Resolved]
  - Ageusia [Not Recovered/Not Resolved]
  - Nausea [Not Recovered/Not Resolved]
  - Asthenia [Not Recovered/Not Resolved]
